FAERS Safety Report 5375646-7 (Version None)
Quarter: 2007Q2

REPORT INFORMATION
  Report Type: 
  Country: None (occurrence: None)
  Receive Date: 20070629
  Receipt Date: 20070622
  Transmission Date: 20071010
  Serious: Yes (Other)
  Sender: FDA-Public Use
  Company Number: JP-PFIZER INC-2007051906

PATIENT
  Age: 80 Year
  Sex: Male

DRUGS (3)
  1. ZYVOX [Suspect]
     Indication: STAPHYLOCOCCAL INFECTION
     Dosage: DAILY DOSE:1200MG
     Dates: start: 20070528, end: 20070605
  2. PN TWIN [Concomitant]
  3. SODIUM CHLORIDE [Concomitant]

REACTIONS (1)
  - HYPONATRAEMIA [None]
